FAERS Safety Report 21417828 (Version 4)
Quarter: 2022Q4

REPORT INFORMATION
  Report Type: Spontaneous
  Country: US (occurrence: US)
  Receive Date: 20221006
  Receipt Date: 20221209
  Transmission Date: 20230112
  Serious: Yes (Other)
  Sender: FDA-Public Use
  Company Number: US-PFIZER INC-PV202200075893

PATIENT
  Age: 80 Year
  Sex: Female

DRUGS (2)
  1. RUXIENCE [Suspect]
     Active Substance: RITUXIMAB-PVVR
     Dosage: 476.2 MG, CYCLIC (2 WEEK ONCE QTY: 2 REFILLS: 11)
  2. RUXIENCE [Suspect]
     Active Substance: RITUXIMAB-PVVR
     Dosage: 500 MG, WEEKLY

REACTIONS (2)
  - Osteoporosis [Unknown]
  - Off label use [Unknown]
